FAERS Safety Report 8317805-7 (Version None)
Quarter: 2012Q2

REPORT INFORMATION
  Report Type: 
  Country: None (occurrence: None)
  Receive Date: 20120427
  Receipt Date: 20120418
  Transmission Date: 20120825
  Serious: Yes (Hospitalization)
  Sender: FDA-Public Use
  Company Number: US-BAYER-2011-110621

PATIENT
  Age: 36 Year
  Sex: Female
  Weight: 49.887 kg

DRUGS (12)
  1. YASMIN [Suspect]
     Indication: CONTRACEPTION
     Dosage: UNK
     Route: 048
     Dates: start: 20010901, end: 20011001
  2. YASMIN [Suspect]
     Indication: MENSTRUAL CYCLE MANAGEMENT
     Dosage: UNK
     Dates: start: 20050101, end: 20080701
  3. LEXAPRO [Concomitant]
     Indication: CHEST PAIN
     Dosage: 1/DAY
     Dates: start: 20091101, end: 20091201
  4. ALPRAZOLAM [Concomitant]
     Indication: ANXIETY
  5. DROSPIRENONE AND ETHINYL ESTRADIOL [Suspect]
     Indication: CONTRACEPTION
     Dosage: UNK
     Route: 048
     Dates: start: 20080701, end: 20100107
  6. DROSPIRENONE AND ETHINYL ESTRADIOL [Suspect]
     Indication: MENSTRUAL CYCLE MANAGEMENT
  7. ALPRAZOLAM [Concomitant]
     Indication: CHEST PAIN
     Dosage: 1/DAY
     Dates: start: 20091109, end: 20091201
  8. CLARITHROMYCIN [Concomitant]
     Dosage: UNK
     Dates: start: 20091013
  9. LORAZEPAM [Concomitant]
     Dosage: UNK
     Dates: start: 20091109
  10. CEPHALEXIN [Concomitant]
     Dosage: UNK
     Dates: start: 20100102
  11. LEXAPRO [Concomitant]
     Indication: ANXIETY
  12. HYDROQUINONE [Concomitant]
     Dosage: UNK
     Dates: start: 20100102

REACTIONS (5)
  - ANXIETY [None]
  - CHEST PAIN [None]
  - GENERAL PHYSICAL HEALTH DETERIORATION [None]
  - PULMONARY EMBOLISM [None]
  - EMOTIONAL DISTRESS [None]
